FAERS Safety Report 5420710-7 (Version None)
Quarter: 2007Q3

REPORT INFORMATION
  Report Type: 
  Country: None (occurrence: None)
  Receive Date: 20070816
  Receipt Date: 20070803
  Transmission Date: 20080115
  Serious: Yes (Hospitalization)
  Sender: FDA-Public Use
  Company Number: EMR64300504-10

PATIENT
  Age: 60 Year
  Sex: Female

DRUGS (4)
  1. NIASPAN [Suspect]
     Dosage: 375 MG QD PO
     Route: 048
     Dates: start: 20060809, end: 20060901
  2. BISOPROLOL [Concomitant]
  3. PRAVASTATIN [Concomitant]
  4. ASPIRIN [Concomitant]

REACTIONS (3)
  - LUNG NEOPLASM MALIGNANT [None]
  - METASTASIS [None]
  - PLEURAL EFFUSION [None]
